FAERS Safety Report 24832479 (Version 1)
Quarter: 2025Q1

REPORT INFORMATION
  Report Type: Spontaneous
  Country: US (occurrence: US)
  Receive Date: 20250110
  Receipt Date: 20250110
  Transmission Date: 20250409
  Serious: Yes (Other)
  Sender: ALKERMES
  Company Number: US-ALKERMES INC.-ALK-2025-000047

PATIENT
  Weight: 86.168 kg

DRUGS (3)
  1. LYBALVI [Suspect]
     Active Substance: OLANZAPINE\SAMIDORPHAN L-MALATE
     Indication: Bipolar disorder
     Route: 048
     Dates: start: 2024
  2. OLANZAPINE [Concomitant]
     Active Substance: OLANZAPINE
     Indication: Bipolar disorder
     Route: 065
     Dates: start: 2024
  3. DEPAKOTE [Concomitant]
     Active Substance: DIVALPROEX SODIUM
     Indication: Bipolar disorder
     Route: 065
     Dates: start: 2024

REACTIONS (4)
  - Sleep paralysis [Unknown]
  - Hypersomnia [Unknown]
  - Dyspnoea [Unknown]
  - Weight decreased [Unknown]
